FAERS Safety Report 5137838-1 (Version None)
Quarter: 2006Q4

REPORT INFORMATION
  Report Type: 
  Country: None (occurrence: None)
  Receive Date: 20061030
  Receipt Date: 20060123
  Transmission Date: 20070319
  Serious: No
  Sender: FDA-Public Use
  Company Number: US-GLAXOSMITHKLINE-A0590494A

PATIENT
  Age: 65 Year
  Sex: Female

DRUGS (4)
  1. ADVAIR HFA [Suspect]
     Indication: CHRONIC OBSTRUCTIVE PULMONARY DISEASE
     Dosage: 1PUFF TWICE PER DAY
     Route: 055
     Dates: start: 20050501
  2. ALBUTEROL [Concomitant]
  3. SPIRIVA [Concomitant]
     Route: 065
  4. ESTRADERM [Concomitant]

REACTIONS (3)
  - DYSPEPSIA [None]
  - HICCUPS [None]
  - WEIGHT INCREASED [None]
